FAERS Safety Report 20657503 (Version 3)
Quarter: 2023Q1

REPORT INFORMATION
  Report Type: Other
  Country: ES (occurrence: ES)
  Receive Date: 20220331
  Receipt Date: 20230222
  Transmission Date: 20230417
  Serious: Yes (Other)
  Sender: FDA-Public Use
  Company Number: ES-CELLTRION INC.-2022ES002862

PATIENT

DRUGS (1)
  1. RITUXIMAB [Suspect]
     Active Substance: RITUXIMAB
     Indication: Primary progressive multiple sclerosis
     Dosage: UNK
     Dates: end: 2020

REACTIONS (13)
  - Ileus paralytic [Unknown]
  - Skin ulcer [Unknown]
  - Eye pain [Unknown]
  - Bowel movement irregularity [Unknown]
  - Drug intolerance [Unknown]
  - Genital ulceration [Unknown]
  - Headache [Unknown]
  - Palpitations [Unknown]
  - Burning sensation [Unknown]
  - Stomatitis [Unknown]
  - Chills [Unknown]
  - Drug hypersensitivity [Unknown]
  - Off label use [Unknown]
